FAERS Safety Report 15392677 (Version 2)
Quarter: 2023Q1

REPORT INFORMATION
  Report Type: Spontaneous
  Country: GB (occurrence: GB)
  Receive Date: 20180917
  Receipt Date: 20230309
  Transmission Date: 20230418
  Serious: Yes (Disabling)
  Sender: FDA-Public Use
  Company Number: None

PATIENT
  Age: 37 Year
  Sex: Female
  Weight: 51.71 kg

DRUGS (11)
  1. CIPROFLOXACIN [Suspect]
     Active Substance: CIPROFLOXACIN
     Indication: Urinary tract infection
     Dosage: 500 MG, UNK
     Route: 048
  2. BETAMETHASONE VALERATE\FUSIDIC ACID [Concomitant]
     Active Substance: BETAMETHASONE VALERATE\FUSIDIC ACID
     Dosage: UNK
  3. DOSULEPIN HYDROCHLORIDE [Concomitant]
     Active Substance: DOTHIEPIN HYDROCHLORIDE
     Dosage: 75 MG, UNK
  4. DOSULEPIN HYDROCHLORIDE [Concomitant]
     Active Substance: DOTHIEPIN HYDROCHLORIDE
     Dosage: 75 MG, UNK
  5. AMLODIPINE [Concomitant]
     Active Substance: AMLODIPINE BESYLATE
     Dosage: 5 MG, UNK
  6. AMLODIPINE [Concomitant]
     Active Substance: AMLODIPINE BESYLATE
     Dosage: 5 MG, UNK
  7. TACROLIMUS [Concomitant]
     Active Substance: TACROLIMUS
     Dosage: UNK
  8. TACROLIMUS [Concomitant]
     Active Substance: TACROLIMUS
  9. CANNABIDIOL [Concomitant]
     Active Substance: CANNABIDIOL
     Dosage: UNK
  10. RAMIPRIL [Concomitant]
     Active Substance: RAMIPRIL
     Dosage: 5 MG, UNK
  11. RAMIPRIL [Concomitant]
     Active Substance: RAMIPRIL
     Dosage: 5 MG, UNK

REACTIONS (17)
  - Dental caries [Not Recovered/Not Resolved]
  - Arthralgia [Not Recovered/Not Resolved]
  - Toxicity to various agents [Unknown]
  - Depression [Not Recovered/Not Resolved]
  - Depression [Not Recovered/Not Resolved]
  - Post viral fatigue syndrome [Not Recovered/Not Resolved]
  - Tooth loss [Not Recovered/Not Resolved]
  - Hypertension [Not Recovered/Not Resolved]
  - Tendonitis [Not Recovered/Not Resolved]
  - Dermatitis [Not Recovered/Not Resolved]
  - Gingival disorder [Unknown]
  - Tendon disorder [Unknown]
  - Vertigo [Unknown]
  - Balance disorder [Unknown]
  - Dizziness [Unknown]
  - Neuropathy peripheral [Unknown]
  - Psychotic disorder [Unknown]

NARRATIVE: CASE EVENT DATE: 19980101
